FAERS Safety Report 4691119-9 (Version None)
Quarter: 2005Q2

REPORT INFORMATION
  Report Type: 
  Country: None (occurrence: None)
  Receive Date: 20050610
  Receipt Date: 20050603
  Transmission Date: 20051028
  Serious: Yes (Life-Threatening, Hospitalization)
  Sender: FDA-Public Use
  Company Number: 2005066690

PATIENT
  Age: 70 Year
  Sex: Male

DRUGS (4)
  1. SORTIS                (ATORVASTATIN) [Suspect]
     Indication: LIPID METABOLISM DISORDER
     Dosage: 10 MG (10 MG, 1 IN 1 D), ORAL
     Route: 048
     Dates: start: 20020803, end: 20050404
  2. PANTOPRAZOLE SODIUM [Concomitant]
  3. SPASMOLYT                (TROSPIUM CHLORIDE) [Concomitant]
  4. ANTIINFLAMMATORY/ANTIRHEUMATIC PRODUCTS [Concomitant]

REACTIONS (10)
  - ASTHENIA [None]
  - ESCHERICHIA URINARY TRACT INFECTION [None]
  - INFLAMMATION [None]
  - MYOSITIS [None]
  - NEUTROPHIL PERCENTAGE INCREASED [None]
  - PYREXIA [None]
  - RED BLOOD CELL SEDIMENTATION RATE INCREASED [None]
  - RESPIRATORY TRACT INFECTION [None]
  - RHABDOMYOLYSIS [None]
  - SPEECH DISORDER [None]
